FAERS Safety Report 9177557 (Version 1)
Quarter: 2013Q1

REPORT INFORMATION
  Report Type: Spontaneous
  Country: US (occurrence: None)
  Receive Date: 20130315
  Receipt Date: 20130315
  Transmission Date: 20140127
  Serious: Yes (Hospitalization, Other)
  Sender: FDA-Public Use
  Company Number: 2013-02003

PATIENT
  Age: 32 Year
  Sex: Male

DRUGS (7)
  1. GLIBENCLAMIDE [Suspect]
     Indication: TYPE 2 DIABETES MELLITUS
     Route: 048
  2. FUROSEMIDE [Suspect]
     Indication: CARDIAC FAILURE CONGESTIVE
  3. ACETYLSALICYLIC ACID (ACETYLSALICYLIC ACID) [Concomitant]
  4. CARVEDILOL (CARVEDILOL) [Concomitant]
  5. CITALOPRAM (CITALOPRAM) [Concomitant]
  6. ROSUVASTATIN (ROSUVASTATIN) [Concomitant]
  7. FERROUS SULFATE (FERROUS SULFATE) [Concomitant]

REACTIONS (4)
  - Hypoglycaemia [None]
  - Altered state of consciousness [None]
  - Renal failure acute [None]
  - Bundle branch block left [None]
